FAERS Safety Report 9182830 (Version 1)
Quarter: 2013Q1

REPORT INFORMATION
  Report Type: Report from Study
  Country: CA (occurrence: CA)
  Receive Date: 20130322
  Receipt Date: 20130322
  Transmission Date: 20140127
  Serious: Yes (Other)
  Sender: FDA-Public Use
  Company Number: CA-JNJFOC-20130300203

PATIENT
  Sex: Male
  Weight: 73 kg

DRUGS (16)
  1. REMICADE [Suspect]
     Indication: PSORIASIS
     Route: 042
     Dates: start: 20090108
  2. REMICADE [Suspect]
     Indication: PSORIATIC ARTHROPATHY
     Route: 042
     Dates: start: 20090108
  3. ASA [Concomitant]
     Route: 048
  4. FENTANYL [Concomitant]
     Route: 061
  5. QUETIAPINE [Concomitant]
     Route: 048
  6. OXAZEPAM [Concomitant]
     Route: 048
  7. NITROGLYCERINE [Concomitant]
     Route: 060
  8. UNKNOWN MEDICATION [Concomitant]
     Route: 048
  9. DILAUDID [Concomitant]
     Route: 048
  10. ATORVASTATIN [Concomitant]
     Route: 048
  11. OMEPRAZOLE [Concomitant]
     Route: 048
  12. VALSARTAN [Concomitant]
     Route: 048
  13. BISACODYL [Concomitant]
     Route: 048
  14. METOPROLOL [Concomitant]
     Route: 048
  15. LEFLUNOMIDE [Concomitant]
     Route: 065
  16. FOLIC ACID [Concomitant]
     Route: 048

REACTIONS (2)
  - Arthropathy [Unknown]
  - International normalised ratio increased [Unknown]
